FAERS Safety Report 6887314-0 (Version None)
Quarter: 2010Q3

REPORT INFORMATION
  Report Type: 
  Country: None (occurrence: None)
  Receive Date: 20100730
  Receipt Date: 20090713
  Transmission Date: 20110219
  Serious: No
  Sender: FDA-Public Use
  Company Number: A0796653A

PATIENT
  Sex: Female

DRUGS (3)
  1. IMITREX [Suspect]
     Indication: MIGRAINE
     Dosage: 50MG AS REQUIRED
     Route: 048
  2. SUMATRIPTAN SUCCINATE [Suspect]
     Indication: MIGRAINE
     Dosage: 25MG AS REQUIRED
     Route: 048
  3. NO CONCURRENT MEDICATION [Concomitant]

REACTIONS (10)
  - ABDOMINAL PAIN UPPER [None]
  - BURNING SENSATION [None]
  - CHEST DISCOMFORT [None]
  - CHEST PAIN [None]
  - DRUG ADMINISTRATION ERROR [None]
  - FATIGUE [None]
  - MENTAL IMPAIRMENT [None]
  - OEDEMA PERIPHERAL [None]
  - SKIN DISCOLOURATION [None]
  - SOMNOLENCE [None]
